FAERS Safety Report 4779009-4 (Version None)
Quarter: 2005Q3

REPORT INFORMATION
  Report Type: 
  Country: None (occurrence: None)
  Receive Date: 20050923
  Receipt Date: 20050912
  Transmission Date: 20060218
  Serious: Yes (Death)
  Sender: FDA-Public Use
  Company Number: 2005123021

PATIENT
  Sex: Male

DRUGS (12)
  1. VFEND [Suspect]
     Indication: PNEUMONITIS CRYPTOCOCCAL
     Dosage: 360 MG INTRAVENOUS
     Route: 042
     Dates: start: 20050817, end: 20050817
  2. MEROPEN (MEROPENEM) [Concomitant]
  3. ADONA (CARBAZOCHROME SODIUM SULFONATE) [Concomitant]
  4. TRANSAMIN (TRANEXAMIC ACID) [Concomitant]
  5. OMEPRAZOLE [Concomitant]
  6. STRONG NEO-MINOPHAGEN C (AMINOACETIC ACID, CYSTEINE, GLYCYRRHIZIC ACID [Concomitant]
  7. NEORAL [Concomitant]
  8. MEDROL [Concomitant]
  9. MUCODYNE (CARBOCISTEINE) [Concomitant]
  10. MUCOSOLVAN (AMBROXOL HYDROCHLORIDE) [Concomitant]
  11. ALLOPURINOL [Concomitant]
  12. ALL OTHER THERAPEUTIC PRODUCTS [Concomitant]

REACTIONS (3)
  - ALANINE AMINOTRANSFERASE INCREASED [None]
  - ASPARTATE AMINOTRANSFERASE INCREASED [None]
  - GENERAL PHYSICAL CONDITION ABNORMAL [None]
